FAERS Safety Report 7931048-8 (Version None)
Quarter: 2011Q4

REPORT INFORMATION
  Report Type: 
  Country: None (occurrence: None)
  Receive Date: 20111118
  Receipt Date: 20111118
  Transmission Date: 20120403
  Serious: Yes (Hospitalization)
  Sender: FDA-Public Use
  Company Number: None

PATIENT
  Age: 49 Year
  Sex: Female
  Weight: 79.3795 kg

DRUGS (1)
  1. PRISTIQ [Suspect]
     Indication: DEPRESSION
     Dosage: 50 MG 1 X DAY ORAL
     Route: 048
     Dates: start: 20111005, end: 20111007

REACTIONS (23)
  - NAUSEA [None]
  - RESTLESSNESS [None]
  - CHEST PAIN [None]
  - CONFUSIONAL STATE [None]
  - DEPRESSION [None]
  - MENTAL IMPAIRMENT [None]
  - DYSGEUSIA [None]
  - ANXIETY [None]
  - ANGER [None]
  - DECREASED APPETITE [None]
  - HYPERACUSIS [None]
  - CHILLS [None]
  - ABNORMAL DREAMS [None]
  - VERTIGO [None]
  - PAROSMIA [None]
  - DIZZINESS [None]
  - HYPERTENSION [None]
  - INSOMNIA [None]
  - HYPERHIDROSIS [None]
  - ASTHENIA [None]
  - ELECTROCARDIOGRAM CHANGE [None]
  - DIARRHOEA [None]
  - DYSPNOEA [None]
